FAERS Safety Report 7149323-6 (Version None)
Quarter: 2010Q4

REPORT INFORMATION
  Report Type: 
  Country: None (occurrence: None)
  Receive Date: 20101209
  Receipt Date: 20101126
  Transmission Date: 20110411
  Serious: Yes (Hospitalization)
  Sender: FDA-Public Use
  Company Number: NL-MEDIMMUNE-MEDI-0011881

PATIENT
  Sex: Female
  Weight: 5.75 kg

DRUGS (4)
  1. SYNAGIS [Suspect]
     Route: 030
     Dates: start: 20100903, end: 20101029
  2. OMEPRAZOLE [Concomitant]
     Dates: end: 20100101
  3. RANITIDINE [Concomitant]
     Dates: start: 20100101
  4. MEDICATION NOS (PROBABLY ZANTAC) [Concomitant]

REACTIONS (5)
  - BODY TEMPERATURE INCREASED [None]
  - ERYTHEMA [None]
  - INCREASED UPPER AIRWAY SECRETION [None]
  - MICTURITION FREQUENCY DECREASED [None]
  - OLIGODIPSIA [None]
